FAERS Safety Report 5009677-3 (Version None)
Quarter: 2006Q2

REPORT INFORMATION
  Report Type: 
  Country: None (occurrence: None)
  Receive Date: 20060522
  Receipt Date: 20060509
  Transmission Date: 20061013
  Serious: Yes (Death, Hospitalization, Other)
  Sender: FDA-Public Use
  Company Number: 2006050169

PATIENT
  Age: 47 Year
  Sex: Female
  Weight: 56 kg

DRUGS (11)
  1. SILDENAFIL CITRATE [Suspect]
     Indication: PULMONARY HYPERTENSION
     Dosage: 75 MG (25 MG, 3 IN 1 D), ORAL
     Route: 048
     Dates: start: 20060120, end: 20060101
  2. TRACLEER [Suspect]
     Indication: PULMONARY HYPERTENSION
     Dosage: 250 MG (125 MG, 2 IN 1 D), ORAL
     Route: 048
     Dates: start: 20000101, end: 20060301
  3. DILTIAZEM [Concomitant]
  4. BUMETANIDE [Concomitant]
  5. AMILORIDE (AMILORIDE) [Concomitant]
  6. QUININE SULFATE [Concomitant]
  7. SPIRONOLACTONE [Concomitant]
  8. LEVOTHYROXINE SODIUM [Concomitant]
  9. ZOPICLONE (ZOPICLONE) [Concomitant]
  10. IMMUNOGLOBULINS (IMMUNOGLOBULINS) [Concomitant]
  11. ERYTHROMYCIN [Concomitant]

REACTIONS (14)
  - ABDOMINAL PAIN [None]
  - ALANINE AMINOTRANSFERASE INCREASED [None]
  - BLOOD ALBUMIN INCREASED [None]
  - BLOOD ALKALINE PHOSPHATASE INCREASED [None]
  - BLOOD BILIRUBIN INCREASED [None]
  - CARDIAC DISORDER [None]
  - DRUG INEFFECTIVE [None]
  - EPSTEIN-BARR VIRUS INFECTION [None]
  - GENERAL PHYSICAL HEALTH DETERIORATION [None]
  - HEPATIC FAILURE [None]
  - HEPATITIS B VIRUS [None]
  - MULTI-ORGAN FAILURE [None]
  - RESPIRATORY DISORDER [None]
  - RIGHT VENTRICULAR FAILURE [None]
